FAERS Safety Report 16438893 (Version 2)
Quarter: 2019Q3

REPORT INFORMATION
  Report Type: Report from Study
  Country: ES (occurrence: ES)
  Receive Date: 20190617
  Receipt Date: 20190927
  Transmission Date: 20191004
  Serious: Yes (Death)
  Sender: FDA-Public Use
  Company Number: ES-ROCHE-2337148

PATIENT
  Sex: Female

DRUGS (1)
  1. RITUXIMAB. [Suspect]
     Active Substance: RITUXIMAB
     Indication: SYSTEMIC LUPUS ERYTHEMATOSUS
     Dosage: UNK
     Route: 041

REACTIONS (4)
  - Intentional product use issue [Fatal]
  - Pneumonitis [Unknown]
  - Infection [Fatal]
  - Off label use [Fatal]
